FAERS Safety Report 6414820-5 (Version None)
Quarter: 2009Q4

REPORT INFORMATION
  Report Type: 
  Country: None (occurrence: None)
  Receive Date: 20091026
  Receipt Date: 20091015
  Transmission Date: 20100525
  Serious: Yes (Hospitalization)
  Sender: FDA-Public Use
  Company Number: US-GILEAD-2009-0024881

PATIENT
  Age: 58 Year
  Sex: Male

DRUGS (6)
  1. TRUVADA [Suspect]
     Indication: HIV INFECTION
     Dates: start: 20060101
  2. KALETRA [Concomitant]
     Indication: HIV INFECTION
     Dates: start: 20060101
  3. BACTRIM [Concomitant]
  4. ISENTRESS [Concomitant]
     Indication: HIV INFECTION
     Dates: start: 20080801
  5. INTELENCE [Concomitant]
     Indication: HIV INFECTION
     Dates: start: 20080801
  6. COMBIVIR [Concomitant]
     Indication: HIV INFECTION
     Dates: end: 20080801

REACTIONS (2)
  - RENAL FAILURE [None]
  - VASCULITIS [None]
